FAERS Safety Report 24186500 (Version 1)
Quarter: 2024Q3

REPORT INFORMATION
  Report Type: Report from Study
  Country: CA (occurrence: CA)
  Receive Date: 20240808
  Receipt Date: 20240808
  Transmission Date: 20241016
  Serious: Yes (Hospitalization)
  Sender: JOHNSON AND JOHNSON
  Company Number: CA-JNJFOC-20240816548

PATIENT
  Age: 62 Year
  Sex: Male

DRUGS (1)
  1. MACITENTAN [Suspect]
     Active Substance: MACITENTAN
     Indication: Pulmonary hypertension
     Route: 048
     Dates: start: 20240710

REACTIONS (3)
  - Hospitalisation [Recovering/Resolving]
  - Dizziness [Recovered/Resolved]
  - Cough [Not Recovered/Not Resolved]
